FAERS Safety Report 6213545-9 (Version None)
Quarter: 2009Q2

REPORT INFORMATION
  Report Type: 
  Country: None (occurrence: None)
  Receive Date: 20090603
  Receipt Date: 20090527
  Transmission Date: 20091009
  Serious: Yes (Other)
  Sender: FDA-Public Use
  Company Number: CA-WATSON-2009-03809

PATIENT
  Age: 73 Year
  Sex: Male

DRUGS (6)
  1. FUROSEMIDE (WATSON LABORATORIES) [Suspect]
     Indication: CARDIAC DISORDER
     Dosage: UNK
  2. WARFARIN [Suspect]
     Indication: CARDIAC DISORDER
     Dosage: UNK
  3. ASPIRIN [Suspect]
     Indication: CARDIAC DISORDER
     Dosage: UNK
  4. AMIODARONE HCL [Suspect]
     Indication: CARDIAC DISORDER
     Dosage: UNK
  5. LEVOTHYROXINE [Suspect]
     Indication: DRUG USE FOR UNKNOWN INDICATION
     Dosage: UNK
  6. FERROUS GLUCONATE [Suspect]
     Indication: IRON DEFICIENCY ANAEMIA
     Dosage: UNK

REACTIONS (3)
  - COLITIS [None]
  - COLON ADENOMA [None]
  - PHLEBITIS [None]
